FAERS Safety Report 9857957 (Version 1)
Quarter: 2014Q1

REPORT INFORMATION
  Report Type: Spontaneous
  Country: US (occurrence: US)
  Receive Date: 20140131
  Receipt Date: 20140131
  Transmission Date: 20141002
  Serious: No
  Sender: FDA-Public Use
  Company Number: US-BAYER-2014-016337

PATIENT
  Age: 33 Year
  Sex: Female

DRUGS (6)
  1. BETASERON [Suspect]
     Indication: MULTIPLE SCLEROSIS
     Dosage: 0.25 MG, QOD
     Route: 058
  2. FIORICET [Concomitant]
     Dosage: UNK
     Route: 048
  3. ZANAFLEX [Concomitant]
     Dosage: 6 MG, UNK
     Route: 048
  4. VITAMIN D [Concomitant]
     Dosage: 1000 U, UNK
     Route: 048
  5. BIOTIN [Concomitant]
     Dosage: 500
     Route: 048
  6. GABAPENTIN [Concomitant]
     Dosage: 400 MG, UNK
     Route: 048

REACTIONS (2)
  - Influenza like illness [Recovered/Resolved]
  - Headache [Recovered/Resolved]
